FAERS Safety Report 11661146 (Version 1)
Quarter: 2015Q4

REPORT INFORMATION
  Report Type: Spontaneous
  Country: US (occurrence: US)
  Receive Date: 20151026
  Receipt Date: 20151026
  Transmission Date: 20160304
  Serious: Yes (Other)
  Sender: FDA-Public Use
  Company Number: US-BAYER-2015-443958

PATIENT
  Age: 77 Year
  Sex: Male

DRUGS (1)
  1. CIPRO [Suspect]
     Active Substance: CIPROFLOXACIN HYDROCHLORIDE
     Dosage: UNK

REACTIONS (8)
  - Coordination abnormal [None]
  - Abdominal pain upper [None]
  - Tendonitis [None]
  - Muscle spasms [None]
  - Pain in extremity [None]
  - Pruritus [None]
  - Nausea [None]
  - Muscular weakness [None]
